FAERS Safety Report 10304409 (Version 1)
Quarter: 2014Q3

REPORT INFORMATION
  Report Type: Not Available
  Country: IN (occurrence: IN)
  Receive Date: 20140715
  Receipt Date: 20140715
  Transmission Date: 20150326
  Serious: No
  Sender: FDA-Public Use
  Company Number: IN-LUPIN PHARMACEUTICALS INC.-2014-00964

PATIENT
  Age: 23 Year
  Sex: Male

DRUGS (3)
  1. ACERA-D [Concomitant]
     Indication: PRODUCT USED FOR UNKNOWN INDICATION
     Route: 048
     Dates: start: 20140426
  2. L-CIN [Suspect]
     Active Substance: LEVOFLOXACIN
     Indication: ABDOMINAL PAIN UPPER
     Route: 048
     Dates: start: 20140426
  3. PARACETAMOL [Concomitant]
     Active Substance: ACETAMINOPHEN
     Indication: PRODUCT USED FOR UNKNOWN INDICATION
     Route: 048
     Dates: start: 20140426

REACTIONS (3)
  - Vertigo [Recovering/Resolving]
  - Nausea [Recovering/Resolving]
  - Off label use [Unknown]

NARRATIVE: CASE EVENT DATE: 20140426
